FAERS Safety Report 7054471-5 (Version None)
Quarter: 2010Q4

REPORT INFORMATION
  Report Type: 
  Country: None (occurrence: None)
  Receive Date: 20101015
  Receipt Date: 20101005
  Transmission Date: 20110411
  Serious: Yes (Disabling, Congenital Anomaly)
  Sender: FDA-Public Use
  Company Number: 2010MA003454

PATIENT

DRUGS (3)
  1. MIRTAZAPINE [Suspect]
     Indication: DRUG EXPOSURE DURING PREGNANCY
     Dosage: 45 MG; TRPL
     Route: 064
  2. SEROQUEL [Suspect]
     Indication: DRUG EXPOSURE DURING PREGNANCY
     Dosage: 250 MG; TRPL
     Route: 064
  3. TRAMADOL HYDROCHLORIDE [Concomitant]

REACTIONS (4)
  - FIBULA AGENESIS [None]
  - LIMB REDUCTION DEFECT [None]
  - MATERNAL DRUGS AFFECTING FOETUS [None]
  - TALIPES [None]
